FAERS Safety Report 6191669-2 (Version None)
Quarter: 2009Q2

REPORT INFORMATION
  Report Type: 
  Country: None (occurrence: None)
  Receive Date: 20090515
  Receipt Date: 20090511
  Transmission Date: 20091009
  Serious: Yes (Life-Threatening, Other)
  Sender: FDA-Public Use
  Company Number: PHHY2009JP11274

PATIENT
  Sex: Male

DRUGS (2)
  1. LAMISIL [Suspect]
     Dosage: 1 DF, QD
     Route: 048
     Dates: start: 20080908, end: 20090305
  2. LAMISIL [Suspect]
     Indication: BODY TINEA

REACTIONS (3)
  - ACUTE LYMPHOCYTIC LEUKAEMIA [None]
  - LIVER FUNCTION TEST ABNORMAL [None]
  - WHITE BLOOD CELL COUNT INCREASED [None]
